FAERS Safety Report 8579243-1 (Version None)
Quarter: 2012Q3

REPORT INFORMATION
  Report Type: 
  Country: None (occurrence: None)
  Receive Date: 20120808
  Receipt Date: 20120807
  Transmission Date: 20120928
  Serious: Yes (Death)
  Sender: FDA-Public Use
  Company Number: FR-ROCHE-1095815

PATIENT
  Sex: Male

DRUGS (6)
  1. OXALIPLATIN [Concomitant]
     Dosage: SECOND LINE TREAMENT
  2. IRINOTECAN HYDROCHLORIDE [Concomitant]
  3. FLUOROURACIL [Concomitant]
     Dosage: SECOND LINE TREAMENT
  4. AVASTIN [Suspect]
     Indication: COLON CANCER
     Dates: start: 20100809, end: 20100811
  5. LEUCOVORIN CALCIUM [Concomitant]
     Dosage: SECOND LINE TREAMENT
     Dates: start: 20100809, end: 20100811
  6. LEUCOVORIN CALCIUM [Concomitant]
     Dates: start: 20100823, end: 20101103

REACTIONS (3)
  - DEATH [None]
  - NEUROPATHY PERIPHERAL [None]
  - ASTHENIA [None]
